FAERS Safety Report 7250137-7 (Version None)
Quarter: 2011Q1

REPORT INFORMATION
  Report Type: 
  Country: None (occurrence: None)
  Receive Date: 20110128
  Receipt Date: 20110107
  Transmission Date: 20110831
  Serious: Yes (Disabling, Other)
  Sender: FDA-Public Use
  Company Number: US-BAYER-2010-003187

PATIENT
  Sex: Male

DRUGS (2)
  1. NEXAVAR [Suspect]
     Indication: HEPATIC NEOPLASM MALIGNANT
     Dosage: 200 MG, BID
  2. NEXAVAR [Suspect]
     Dosage: 400 MG, BID
     Dates: start: 20101126, end: 20101203

REACTIONS (7)
  - FATIGUE [None]
  - FALL [None]
  - DIARRHOEA [None]
  - CONFUSIONAL STATE [None]
  - MEMORY IMPAIRMENT [None]
  - APHAGIA [None]
  - STOMATITIS [None]
